FAERS Safety Report 10409337 (Version 2)
Quarter: 2014Q4

REPORT INFORMATION
  Report Type: Spontaneous
  Country: IT (occurrence: IT)
  Receive Date: 20140826
  Receipt Date: 20141105
  Transmission Date: 20150528
  Serious: Yes (Hospitalization)
  Sender: FDA-Public Use
  Company Number: IT-PFIZER INC-2014234883

PATIENT
  Age: 72 Year
  Sex: Male

DRUGS (4)
  1. DOXORUBICIN HCL [Suspect]
     Active Substance: DOXORUBICIN HYDROCHLORIDE
     Indication: NON-HODGKIN^S LYMPHOMA STAGE III
     Dosage: UNK
     Dates: start: 20140522, end: 20140522
  2. DACARBAZINE. [Suspect]
     Active Substance: DACARBAZINE
     Indication: NON-HODGKIN^S LYMPHOMA STAGE III
     Dosage: UNK
     Dates: start: 20140522, end: 20140522
  3. BLEOMYCIN SULFATE [Suspect]
     Active Substance: BLEOMYCIN SULFATE
     Indication: NON-HODGKIN^S LYMPHOMA STAGE III
     Dosage: UNK
     Dates: start: 20140522, end: 20140522
  4. VINBLASTINE SULFATE. [Suspect]
     Active Substance: VINBLASTINE SULFATE
     Indication: NON-HODGKIN^S LYMPHOMA STAGE III
     Dosage: UNK
     Dates: start: 20140522, end: 20140522

REACTIONS (8)
  - General physical health deterioration [Recovering/Resolving]
  - Thrombocytopenia [Recovering/Resolving]
  - Seizure [Recovering/Resolving]
  - Neutropenia [Recovering/Resolving]
  - Hyponatraemia [Recovering/Resolving]
  - Lymphopenia [Recovering/Resolving]
  - Hyperglycaemia [Recovering/Resolving]
  - Hypercreatininaemia [Recovering/Resolving]

NARRATIVE: CASE EVENT DATE: 20140531
